FAERS Safety Report 9805364 (Version 1)
Quarter: 2014Q1

REPORT INFORMATION
  Report Type: Spontaneous
  Country: US (occurrence: US)
  Receive Date: 20140109
  Receipt Date: 20140109
  Transmission Date: 20141002
  Serious: Yes (Other)
  Sender: FDA-Public Use
  Company Number: US-PFIZER INC-2014003700

PATIENT
  Sex: Male

DRUGS (2)
  1. NEURONTIN [Suspect]
     Indication: BACK DISORDER
     Dosage: 4 OF THE 300MG, A DAY
  2. NEURONTIN [Suspect]
     Indication: NERVE INJURY
     Dosage: 3X 100MG DAILY  : 100MG (MORNING) +200MG EVENING

REACTIONS (9)
  - Off label use [Unknown]
  - Syncope [Unknown]
  - Blood pressure decreased [Recovering/Resolving]
  - Suicidal ideation [Unknown]
  - Dizziness [Unknown]
  - Insomnia [Unknown]
  - Panic attack [Unknown]
  - Activities of daily living impaired [Unknown]
  - Anxiety [Unknown]
